FAERS Safety Report 17091458 (Version 2)
Quarter: 2020Q1

REPORT INFORMATION
  Report Type: Spontaneous
  Country: US (occurrence: US)
  Receive Date: 20191129
  Receipt Date: 20200110
  Transmission Date: 20200409
  Serious: No
  Sender: FDA-Public Use
  Company Number: US-ASTRAZENECA-2019SF57471

PATIENT
  Sex: Female
  Weight: 58.1 kg

DRUGS (2)
  1. BYDUREON [Suspect]
     Active Substance: EXENATIDE
     Indication: DIABETES MELLITUS
     Dosage: UNKNOWN
     Route: 065
  2. BYDUREON BCISE [Suspect]
     Active Substance: EXENATIDE
     Indication: DIABETES MELLITUS
     Route: 065
     Dates: start: 201907

REACTIONS (4)
  - Device leakage [Not Recovered/Not Resolved]
  - Wrong technique in product usage process [Unknown]
  - Injection site extravasation [Not Recovered/Not Resolved]
  - Injection site pain [Unknown]
